FAERS Safety Report 8702129 (Version 5)
Quarter: 2012Q4

REPORT INFORMATION
  Report Type: 
  Country: US (occurrence: US)
  Receive Date: 20120803
  Receipt Date: 20121203
  Transmission Date: 20130627
  Serious: Yes (Disabling, Other)
  Sender: FDA-Public Use
  Company Number: US-PFIZER INC-2012186156

PATIENT
  Age: 46 Year
  Sex: Female
  Weight: 53.52 kg

DRUGS (6)
  1. CELEBREX [Suspect]
     Indication: PAIN IN LEG
     Dosage: 200 mg, 2x/day
     Dates: start: 199901
  2. CELEBREX [Suspect]
     Indication: PAIN MUSCLE
  3. CELEBREX [Suspect]
     Indication: CRAMPS LEGS
  4. MELATONIN [Concomitant]
     Indication: DIFFICULTY SLEEPING
     Dosage: 3 mg, UNK
  5. NEXIUM [Concomitant]
     Dosage: UNK
  6. PROVENTIL INHALER [Concomitant]
     Indication: CHRONIC BRONCHITIS
     Dosage: UNK

REACTIONS (15)
  - Brain cancer metastatic [Unknown]
  - Musculoskeletal disorder [Unknown]
  - Balance disorder [Unknown]
  - Skin cancer [Unknown]
  - Bone cancer [Recovered/Resolved]
  - Grand mal convulsion [Unknown]
  - Oesophageal carcinoma [Unknown]
  - Candidiasis [Unknown]
  - Hypersensitivity [Unknown]
  - Pain in extremity [Unknown]
  - Hypoaesthesia [Unknown]
  - Tooth disorder [Unknown]
  - Lacrimal disorder [Unknown]
  - Salivary gland disorder [Unknown]
  - Herpes zoster [Unknown]
